FAERS Safety Report 6612821-5 (Version None)
Quarter: 2010Q1

REPORT INFORMATION
  Report Type: 
  Country: None (occurrence: None)
  Receive Date: 20100303
  Receipt Date: 20090604
  Transmission Date: 20100710
  Serious: No
  Sender: FDA-Public Use
  Company Number: US-ABBOTT-09P-163-0578283-00

PATIENT
  Sex: Female
  Weight: 79.45 kg

DRUGS (3)
  1. BIAXIN XL [Suspect]
     Indication: SINUSITIS
     Route: 048
     Dates: start: 20090521, end: 20090603
  2. BIAXIN XL [Suspect]
     Indication: EAR INFECTION
  3. SOTALOL [Concomitant]
     Indication: ATRIAL FIBRILLATION
     Route: 048

REACTIONS (3)
  - DRUG DOSE OMISSION [None]
  - RASH [None]
  - STOMATITIS [None]
